FAERS Safety Report 6071262-2 (Version None)
Quarter: 2009Q1

REPORT INFORMATION
  Report Type: 
  Country: None (occurrence: None)
  Receive Date: 20090204
  Receipt Date: 20090126
  Transmission Date: 20090719
  Serious: Yes (Death)
  Sender: FDA-Public Use
  Company Number: 2009JP000468

PATIENT
  Age: 63 Year
  Sex: Male

DRUGS (13)
  1. TACROLIMUS [Suspect]
     Indication: LIVER TRANSPLANT
     Dosage: 0.03 MG/KG, D; IV NOS
     Route: 042
  2. TACROLIMUS [Suspect]
     Indication: LIVER TRANSPLANT
     Dosage: /D, ORAL
     Route: 048
  3. METHYLPREDNISOLONE [Suspect]
     Indication: CHEMOTHERAPY
     Dosage: 125 MG, D; INTRA-ARTERIAL; 1 MG/KG /D, INTRA-ARTERIAL
     Route: 013
  4. METHYLPREDNISOLONE [Suspect]
     Indication: CHEMOTHERAPY
     Dosage: 125 MG, D; INTRA-ARTERIAL; 1 MG/KG /D, INTRA-ARTERIAL
     Route: 013
  5. METHYLPREDNISOLONE [Suspect]
     Indication: LIVER TRANSPLANT
     Dosage: 1000 MG /D; IV NOS; 200 MG /D; IV NOS; 40 MG /D, IV NOS
     Route: 042
  6. RITUXIMAB(RITUXIMAB) FORMULATION UNKNOWN [Suspect]
     Indication: DRUG THERAPY
     Dosage: 375 MG/M2, /D;
  7. BASILIXIMAB(BASILIXIMAB) INJECTION [Suspect]
     Indication: LIVER TRANSPLANT
     Dosage: 20 MG, /D; IV NOS; 20 MG /D, IV NOS
     Route: 042
  8. BASILIXIMAB(BASILIXIMAB) INJECTION [Suspect]
     Indication: LIVER TRANSPLANT
     Dosage: 20 MG, /D; IV NOS; 20 MG /D, IV NOS
     Route: 042
  9. PREDNISOLONE [Suspect]
     Indication: LIVER TRANSPLANT
     Dosage: 0.5 MG/KG /D, ORAL, ORAL
     Route: 048
  10. MYCOPHENOLATE MOFETIL [Suspect]
     Indication: LIVER TRANSPLANT
     Dosage: 1000 MG, BID, ORAL
     Route: 048
  11. IMMUNE GLOBULIN NOS [Suspect]
     Indication: LIVER TRANSPLANT
     Dosage: IV NOS
     Route: 042
  12. PROSTAGLANDIN E1 (ALPROSTADIL) [Concomitant]
  13. GABEXATE MESYLATE (GABEXATE MESILATE) [Concomitant]

REACTIONS (5)
  - ABDOMINAL DISCOMFORT [None]
  - CULTURE URINE POSITIVE [None]
  - PSEUDOMONAS INFECTION [None]
  - SEPSIS [None]
  - SYSTEMIC INFLAMMATORY RESPONSE SYNDROME [None]
